FAERS Safety Report 5730668-9 (Version None)
Quarter: 2008Q2

REPORT INFORMATION
  Report Type: 
  Country: None (occurrence: None)
  Receive Date: 20080507
  Receipt Date: 20080430
  Transmission Date: 20081010
  Serious: Yes (Hospitalization)
  Sender: FDA-Public Use
  Company Number: IT-BRISTOL-MYERS SQUIBB COMPANY-14170005

PATIENT
  Age: 55 Year
  Sex: Male

DRUGS (3)
  1. ERBITUX [Suspect]
     Dosage: STRENGTH - 2MG/ML; THERAPY DATES: 31-JAN-2008 TO 27-FEB-2008 AND RESTARTED AGAIN ON 07-APR-2008.
     Route: 042
     Dates: start: 20080131
  2. IRINOTECAN HCL [Suspect]
     Dates: start: 20080131
  3. TRAMADOL HCL [Concomitant]
     Dates: start: 20080110, end: 20080305

REACTIONS (2)
  - ABDOMINAL ADHESIONS [None]
  - INTESTINAL OBSTRUCTION [None]
